FAERS Safety Report 25776528 (Version 2)
Quarter: 2025Q3

REPORT INFORMATION
  Report Type: Spontaneous
  Country: US (occurrence: US)
  Receive Date: 20250909
  Receipt Date: 20250909
  Transmission Date: 20251020
  Serious: No
  Sender: DOMPE FARMACEUTICI
  Company Number: US-FARMAPROD-202502-0625

PATIENT
  Sex: Female

DRUGS (25)
  1. OXERVATE [Suspect]
     Active Substance: CENEGERMIN-BKBJ
     Indication: Neurotrophic keratopathy
     Route: 047
     Dates: start: 20250214
  2. MOXIFLOXACIN [Concomitant]
     Active Substance: MOXIFLOXACIN
  3. PRALUENT [Concomitant]
     Active Substance: ALIROCUMAB
  4. OPTICLEANSE GHI [Concomitant]
  5. PHOSPHATIDYL SERINE [Concomitant]
     Active Substance: PHOSPHATIDYL SERINE
  6. VITAMINS [Concomitant]
     Active Substance: VITAMINS
  7. BERBERINE [Concomitant]
     Active Substance: BERBERINE
  8. PRASTERONE [Concomitant]
     Active Substance: PRASTERONE
  9. NITRIC ACID [Concomitant]
     Active Substance: NITRIC ACID
  10. COENZYME Q10 [Concomitant]
     Active Substance: DIETARY SUPPLEMENT\UBIDECARENONE
  11. COLLAGEN [Concomitant]
     Active Substance: COLLAGEN
  12. FISH OIL [Concomitant]
     Active Substance: FISH OIL
  13. VITAMIN D3-VITAMIN K2 [Concomitant]
  14. STRONTIUM NITRATE [Concomitant]
     Active Substance: STRONTIUM NITRATE
  15. CALCIUM\MAGNESIUM [Concomitant]
     Active Substance: CALCIUM\MAGNESIUM
  16. VITAMIN B12 [Concomitant]
     Active Substance: CYANOCOBALAMIN
  17. VITAMIN B COMPLEX [Concomitant]
     Active Substance: CYANOCOBALAMIN\DEXPANTHENOL\NIACINAMIDE\PYRIDOXINE HYDROCHLORIDE\RIBOFLAVIN 5^-PHOSPHATE SODIUM\THIA
  18. PROBIOTICS NOS [Concomitant]
     Active Substance: PROBIOTICS NOS
  19. IRON [Concomitant]
     Active Substance: IRON
  20. UNSPECIFIED INGREDIENT [Concomitant]
     Active Substance: UNSPECIFIED INGREDIENT
  21. REFRESH TEARS [Concomitant]
     Active Substance: CARBOXYMETHYLCELLULOSE SODIUM
  22. REFRESH CELLUVISC [Concomitant]
     Active Substance: CARBOXYMETHYLCELLULOSE SODIUM
  23. COMBIGAN [Concomitant]
     Active Substance: BRIMONIDINE TARTRATE\TIMOLOL MALEATE
  24. PRED FORTE [Concomitant]
     Active Substance: PREDNISOLONE ACETATE
  25. VALACYCLOVIR [Concomitant]
     Active Substance: VALACYCLOVIR HYDROCHLORIDE

REACTIONS (5)
  - Eye pain [Unknown]
  - Ocular discomfort [Unknown]
  - Headache [Unknown]
  - Eye swelling [Unknown]
  - Ocular hyperaemia [Unknown]
